APPROVED DRUG PRODUCT: PRAVASTATIN SODIUM
Active Ingredient: PRAVASTATIN SODIUM
Strength: 20MG
Dosage Form/Route: TABLET;ORAL
Application: A206061 | Product #001
Applicant: HISUN PHARMACEUTICAL HANGZHOU CO LTD
Approved: Nov 23, 2018 | RLD: No | RS: No | Type: DISCN